FAERS Safety Report 26020769 (Version 1)
Quarter: 2025Q4

REPORT INFORMATION
  Report Type: Spontaneous
  Country: US (occurrence: US)
  Receive Date: 20251110
  Receipt Date: 20251110
  Transmission Date: 20260118
  Serious: No
  Sender: NOVARTIS
  Company Number: US-002147023-NVSC2025US167315

PATIENT
  Sex: Male

DRUGS (1)
  1. COSENTYX [Suspect]
     Active Substance: SECUKINUMAB
     Indication: Product used for unknown indication
     Dosage: UNK (300 MG/ 2 ML)
     Route: 065
     Dates: start: 20250714

REACTIONS (5)
  - Device malfunction [Unknown]
  - Drug dose omission by device [Unknown]
  - Injection site pain [Unknown]
  - Device leakage [Unknown]
  - Device defective [Unknown]
